FAERS Safety Report 8092925-3 (Version None)
Quarter: 2012Q1

REPORT INFORMATION
  Report Type: 
  Country: None (occurrence: None)
  Receive Date: 20120131
  Receipt Date: 20120117
  Transmission Date: 20120608
  Serious: Yes (Hospitalization, Other)
  Sender: FDA-Public Use
  Company Number: CA-JNJFOC-20120112584

PATIENT
  Sex: Male
  Weight: 67.2 kg

DRUGS (4)
  1. IMURAN [Concomitant]
     Route: 048
  2. REMICADE [Suspect]
     Dates: start: 20111215
  3. REMICADE [Suspect]
     Indication: COLITIS ULCERATIVE
     Dates: start: 20101127
  4. ASACOL [Concomitant]
     Route: 048

REACTIONS (4)
  - DYSPNOEA [None]
  - PNEUMONIA [None]
  - TUBERCULOSIS [None]
  - CHEST PAIN [None]
